FAERS Safety Report 11924882 (Version 1)
Quarter: 2016Q1

REPORT INFORMATION
  Report Type: Spontaneous
  Country: FR (occurrence: FR)
  Receive Date: 20160118
  Receipt Date: 20160118
  Transmission Date: 20160526
  Serious: Yes (Hospitalization)
  Sender: FDA-Public Use
  Company Number: FR-SA-2016SA006024

PATIENT
  Age: 78 Year
  Sex: Male

DRUGS (14)
  1. GENTAMICIN. [Suspect]
     Active Substance: GENTAMICIN
     Indication: LUNG DISORDER
     Route: 042
     Dates: start: 20151103, end: 20151106
  2. METFORMIN [Concomitant]
     Active Substance: METFORMIN HYDROCHLORIDE
  3. INEGY [Concomitant]
     Active Substance: EZETIMIBE\SIMVASTATIN
  4. AMIODARONE [Concomitant]
     Active Substance: AMIODARONE
  5. GALVUS [Concomitant]
     Active Substance: VILDAGLIPTIN
  6. PREVISCAN [Concomitant]
     Active Substance: FLUINDIONE
  7. GENTAMICIN. [Suspect]
     Active Substance: GENTAMICIN
     Indication: LUNG DISORDER
     Dosage: RESIDUAL DOSE OF GENTAMICINE AT 1.69
     Route: 042
     Dates: start: 20151107, end: 20151110
  8. LASILIX SPECIAL [Suspect]
     Active Substance: FUROSEMIDE
     Indication: CARDIAC FAILURE
     Route: 048
     Dates: start: 20151103, end: 20151116
  9. SEEBRI BREEZHALER [Concomitant]
     Active Substance: GLYCOPYRROLATE
  10. FUROSEMIDE. [Concomitant]
     Active Substance: FUROSEMIDE
  11. BISOPROLOL [Concomitant]
     Active Substance: BISOPROLOL
  12. AMOXICILLINE [Suspect]
     Active Substance: AMOXICILLIN
     Indication: LUNG DISORDER
     Route: 042
     Dates: start: 20151103, end: 20151116
  13. ALLOPURINOL. [Concomitant]
     Active Substance: ALLOPURINOL
  14. AUGMENTIN [Concomitant]
     Active Substance: AMOXICILLIN\CLAVULANATE POTASSIUM
     Indication: LUNG DISORDER
     Dates: end: 20151103

REACTIONS (1)
  - Acute kidney injury [Recovering/Resolving]

NARRATIVE: CASE EVENT DATE: 20151110
